FAERS Safety Report 6271973-X (Version None)
Quarter: 2009Q3

REPORT INFORMATION
  Report Type: 
  Country: None (occurrence: None)
  Receive Date: 20090717
  Receipt Date: 20090709
  Transmission Date: 20100115
  Serious: Yes (Hospitalization, Other)
  Sender: FDA-Public Use
  Company Number: US-ASTRAZENECA-2009UW19333

PATIENT
  Age: 80 Year
  Sex: Female
  Weight: 71.2 kg

DRUGS (4)
  1. TOPROL-XL [Suspect]
     Indication: ANGINA PECTORIS
     Route: 048
  2. CLONIDINE [Concomitant]
  3. LEVOTHROID [Concomitant]
  4. INSULIN [Concomitant]

REACTIONS (7)
  - BLOOD CREATININE INCREASED [None]
  - BLOOD PRESSURE DECREASED [None]
  - CARDIAC PACEMAKER INSERTION [None]
  - CEREBROVASCULAR ACCIDENT [None]
  - COMA [None]
  - DIALYSIS [None]
  - WEIGHT DECREASED [None]
